FAERS Safety Report 6820939-7 (Version None)
Quarter: 2010Q3

REPORT INFORMATION
  Report Type: 
  Country: None (occurrence: None)
  Receive Date: 20100707
  Receipt Date: 20080104
  Transmission Date: 20110219
  Serious: No
  Sender: FDA-Public Use
  Company Number: US-PFIZER INC-2005163728

PATIENT
  Sex: Male

DRUGS (1)
  1. ZOLOFT [Suspect]
     Route: 064
     Dates: start: 20050701, end: 20051001

REACTIONS (4)
  - DRUG EXPOSURE DURING PREGNANCY [None]
  - MECONIUM IN AMNIOTIC FLUID [None]
  - NEONATAL DISORDER [None]
  - TACHYPNOEA [None]
